FAERS Safety Report 5606031-8 (Version None)
Quarter: 2008Q1

REPORT INFORMATION
  Report Type: 
  Country: None (occurrence: None)
  Receive Date: 20080129
  Receipt Date: 20071219
  Transmission Date: 20080703
  Serious: Yes (Death)
  Sender: FDA-Public Use
  Company Number: IL-NOVOPROD-270374

PATIENT

DRUGS (2)
  1. NOVOSEVEN [Suspect]
     Indication: HAEMORRHAGE
     Dosage: 1.2 MG, TID
     Route: 042
  2. NOVOSEVEN [Suspect]
     Dosage: 4.8 MG, QD
     Route: 042

REACTIONS (1)
  - DEATH [None]
